FAERS Safety Report 8935384 (Version 2)
Quarter: 2013Q1

REPORT INFORMATION
  Report Type: Spontaneous
  Country: DK (occurrence: None)
  Receive Date: 20121119
  Receipt Date: 20121203
  Transmission Date: 20140127
  Serious: Yes (Other)
  Sender: FDA-Public Use
  Company Number: 2012MA013383

PATIENT
  Age: 62 Year
  Sex: Male

DRUGS (14)
  1. FINASTERIDE [Suspect]
     Indication: BLADDER DISORDER
     Dates: start: 20121003, end: 20121014
  2. TAMSULOSIN [Suspect]
     Indication: BLADDER DISORDER
     Dates: start: 20121003, end: 20121014
  3. EZETIMIBE [Concomitant]
  4. LACTULOSE [Concomitant]
  5. METFORMIN [Concomitant]
  6. MONTELUKAST [Concomitant]
  7. OMEPRAZOLE [Concomitant]
  8. SITALGLIPTIN [Concomitant]
  9. SENNA [Concomitant]
  10. SYMBICORT [Concomitant]
  11. TERBUTALINE [Concomitant]
  12. ZOMORPH [Concomitant]
  13. PREDNISOLONE [Concomitant]
  14. TERBUTALINE [Concomitant]

REACTIONS (8)
  - Headache [None]
  - Chest pain [None]
  - Abdominal pain [None]
  - Palpitations [None]
  - Testicular pain [None]
  - Diarrhoea [None]
  - Dizziness [None]
  - Malaise [None]
